FAERS Safety Report 5211093-6 (Version None)
Quarter: 2007Q1

REPORT INFORMATION
  Report Type: 
  Country: None (occurrence: None)
  Receive Date: 20070117
  Receipt Date: 20070109
  Transmission Date: 20070707
  Serious: Yes (Other)
  Sender: FDA-Public Use
  Company Number: AU-PFIZER INC-2006149377

PATIENT
  Sex: Female
  Weight: 86 kg

DRUGS (3)
  1. NORVASC [Suspect]
     Route: 048
  2. XANAX [Concomitant]
     Route: 048
  3. EFFEXOR [Concomitant]
     Route: 048

REACTIONS (2)
  - CYANOSIS [None]
  - HOT FLUSH [None]
